FAERS Safety Report 24435786 (Version 1)
Quarter: 2024Q4

REPORT INFORMATION
  Report Type: Report from Study
  Country: US (occurrence: US)
  Receive Date: 20241015
  Receipt Date: 20241015
  Transmission Date: 20250115
  Serious: No
  Sender: ACCORD
  Company Number: US-Accord-423954

PATIENT
  Age: 64 Year
  Sex: Female

DRUGS (9)
  1. CISPLATIN [Suspect]
     Active Substance: CISPLATIN
     Indication: Bladder cancer stage IV
  2. ENFORTUMAB VEDOTIN [Suspect]
     Active Substance: ENFORTUMAB VEDOTIN
     Indication: Bladder cancer stage IV
     Dosage: (TWO WEEKS ON AND ONE WEEK OFF)
     Route: 042
     Dates: start: 20190312, end: 202003
  3. CLONAZEPAM [Concomitant]
     Active Substance: CLONAZEPAM
  4. FEMRING [Concomitant]
     Active Substance: ESTRADIOL ACETATE
     Dates: start: 2010
  5. PEMBROLIZUMAB [Concomitant]
     Active Substance: PEMBROLIZUMAB
  6. PROGESTERONE [Concomitant]
     Active Substance: PROGESTERONE
     Dates: start: 2010
  7. ZALEPLON [Concomitant]
     Active Substance: ZALEPLON
     Dates: start: 2005
  8. ENFORTUMAB VEDOTIN [Suspect]
     Active Substance: ENFORTUMAB VEDOTIN
     Indication: Bladder cancer stage IV
     Dosage: (TWO WEEKS ON AND ONE WEEK OFF)
     Route: 042
     Dates: start: 202006
  9. ENFORTUMAB VEDOTIN [Suspect]
     Active Substance: ENFORTUMAB VEDOTIN
     Indication: Bladder cancer stage IV
     Dosage: (DECREASED DOSE, TWO WEEKS ON AND ONE WEEK OFF)
     Route: 042
     Dates: start: 202304, end: 202308

REACTIONS (1)
  - Fall [Recovered/Resolved]
